FAERS Safety Report 11868296 (Version 1)
Quarter: 2015Q4

REPORT INFORMATION
  Report Type: Spontaneous
  Country: US (occurrence: US)
  Receive Date: 20151224
  Receipt Date: 20151224
  Transmission Date: 20160305
  Serious: No
  Sender: FDA-Public Use
  Company Number: US-GLAXOSMITHKLINE-US2015179018

PATIENT
  Age: 88 Year
  Sex: Female

DRUGS (1)
  1. SEREVENT DISKUS [Suspect]
     Active Substance: SALMETEROL XINAFOATE
     Indication: ASTHMA
     Dosage: UNK
     Route: 055
     Dates: start: 201512

REACTIONS (2)
  - Dyspnoea [Unknown]
  - Device use error [Recovered/Resolved]

NARRATIVE: CASE EVENT DATE: 201512
